FAERS Safety Report 10038842 (Version 1)
Quarter: 2014Q1

REPORT INFORMATION
  Report Type: Spontaneous
  Country: US (occurrence: US)
  Receive Date: 20140326
  Receipt Date: 20140326
  Transmission Date: 20141002
  Serious: Yes (Death)
  Sender: FDA-Public Use
  Company Number: US-GLAXOSMITHKLINE-A1066726A

PATIENT
  Age: 29 Year
  Sex: Male

DRUGS (2)
  1. VOTRIENT [Suspect]
     Indication: NEOPLASM MALIGNANT
     Dosage: 400MG PER DAY
     Route: 048
     Dates: start: 20140127
  2. INTRON [Concomitant]

REACTIONS (1)
  - Death [Fatal]
